FAERS Safety Report 9073205 (Version 1)
Quarter: 2013Q1

REPORT INFORMATION
  Report Type: Report from Study
  Country: US (occurrence: US)
  Receive Date: 20130128
  Receipt Date: 20130128
  Transmission Date: 20140127
  Serious: No
  Sender: FDA-Public Use
  Company Number: US-ABBOTT-12P-163-0891474-00

PATIENT
  Age: 21 None
  Sex: Female

DRUGS (8)
  1. HUMIRA 40 MG/0.8 ML PEN [Suspect]
     Indication: CROHN^S DISEASE
     Dosage: LOADING DOSE; FOUR INJECTIONS ON SAME DAY.
     Dates: start: 20110106
  2. HYDROCODONE [Concomitant]
     Indication: TENSION HEADACHE
  3. IMURAN [Concomitant]
     Indication: CROHN^S DISEASE
  4. ENTOCORT [Concomitant]
     Indication: CROHN^S DISEASE
  5. MULTIVITAMIN [Concomitant]
     Indication: SUPPLEMENTATION THERAPY
  6. FERREX [Concomitant]
     Indication: MINERAL SUPPLEMENTATION
  7. B12 [Concomitant]
     Indication: SUPPLEMENTATION THERAPY
     Route: 060
  8. OMEGA 3-6-9 [Concomitant]
     Indication: SUPPLEMENTATION THERAPY

REACTIONS (12)
  - Hot flush [Recovered/Resolved]
  - Flushing [Recovered/Resolved]
  - Dizziness [Recovered/Resolved]
  - Nausea [Recovered/Resolved]
  - Somnolence [Recovered/Resolved]
  - Feeling hot [Recovered/Resolved]
  - Skin discolouration [Recovered/Resolved]
  - Dyspnoea [Recovered/Resolved]
  - Blood pressure increased [Recovered/Resolved]
  - Local swelling [Not Recovered/Not Resolved]
  - Crohn^s disease [Unknown]
  - Diarrhoea [Unknown]
